FAERS Safety Report 14394634 (Version 1)
Quarter: 2018Q1

REPORT INFORMATION
  Report Type: Spontaneous
  Country: FR (occurrence: FR)
  Receive Date: 20180116
  Receipt Date: 20180116
  Transmission Date: 20180509
  Serious: Yes (Hospitalization)
  Sender: FDA-Public Use
  Company Number: FR-PFIZER INC-2018013040

PATIENT
  Age: 88 Year
  Sex: Male

DRUGS (9)
  1. BISOPROLOL FUMARATE. [Suspect]
     Active Substance: BISOPROLOL FUMARATE
     Indication: MYOCARDIAL ISCHAEMIA
     Dosage: 2.5 MG, 1DF IN 1 HOUR
     Route: 048
     Dates: end: 20171212
  2. MIRTAZAPINE. [Suspect]
     Active Substance: MIRTAZAPINE
     Dosage: 15 MG, 1X/DAY
     Route: 048
     Dates: start: 20171012, end: 20171201
  3. PREVISCAN /00261401/ [Suspect]
     Active Substance: PENTOXIFYLLINE
     Indication: MYOCARDIAL ISCHAEMIA
     Dosage: 1 DF, 1X/DAY
     Route: 048
     Dates: start: 20170822, end: 20171208
  4. MIANSERINE [Suspect]
     Active Substance: MIANSERIN HYDROCHLORIDE
     Dosage: 10 MG, 1DF IN 1 HOUR
     Route: 048
     Dates: start: 20170911, end: 20171012
  5. DIFFU K [Suspect]
     Active Substance: POTASSIUM CHLORIDE
     Indication: ELECTROLYTE SUBSTITUTION THERAPY
     Dosage: 600 MG, 1X/DAY
     Route: 048
     Dates: end: 20171212
  6. SPIRONOLACTONE. [Suspect]
     Active Substance: SPIRONOLACTONE
     Indication: MYOCARDIAL ISCHAEMIA
     Dosage: 25 MG, 1X/DAY
     Route: 048
     Dates: end: 20171211
  7. INFLUVAC [Concomitant]
     Active Substance: INFLUENZA VIRUS VACCINE
     Indication: INFLUENZA IMMUNISATION
     Dosage: 1 DF, SINGLE
     Route: 030
     Dates: start: 201711, end: 201711
  8. SERESTA [Suspect]
     Active Substance: OXAZEPAM
     Dosage: 10 MG, 1X/DAY
     Route: 048
     Dates: start: 20171012, end: 20171209
  9. FUROSEMIDE. [Concomitant]
     Active Substance: FUROSEMIDE
     Indication: MYOCARDIAL ISCHAEMIA
     Dosage: 40 MG, 1X/DAY
     Route: 048

REACTIONS (1)
  - Rash macular [Recovering/Resolving]

NARRATIVE: CASE EVENT DATE: 201710
